FAERS Safety Report 25169311 (Version 1)
Quarter: 2025Q2

REPORT INFORMATION
  Report Type: Spontaneous
  Country: TR (occurrence: TR)
  Receive Date: 20250407
  Receipt Date: 20250407
  Transmission Date: 20250716
  Serious: Yes (Other)
  Sender: ORGANON
  Company Number: TR-ORGANON-O2503TUR003090

PATIENT
  Age: 28 Year
  Sex: Female

DRUGS (1)
  1. NEXPLANON [Suspect]
     Active Substance: ETONOGESTREL
     Route: 059
     Dates: start: 202407

REACTIONS (4)
  - Heavy menstrual bleeding [Not Recovered/Not Resolved]
  - Syncope [Unknown]
  - Iron deficiency [Not Recovered/Not Resolved]
  - Sexual life impairment [Not Recovered/Not Resolved]

NARRATIVE: CASE EVENT DATE: 20240701
